FAERS Safety Report 8426341-9 (Version None)
Quarter: 2012Q2

REPORT INFORMATION
  Report Type: 
  Country: None (occurrence: None)
  Receive Date: 20120611
  Receipt Date: 20120604
  Transmission Date: 20120825
  Serious: Yes (Hospitalization)
  Sender: FDA-Public Use
  Company Number: US-B.I. PHARMACEUTICALS,INC./RIDGEFIELD-2012-BP-10471BP

PATIENT
  Sex: Female
  Weight: 74.84 kg

DRUGS (12)
  1. LIPITOR [Concomitant]
  2. NEXIUM [Concomitant]
  3. ZANTAC [Concomitant]
  4. VERAPAMIL [Concomitant]
  5. PROAIR HFA [Concomitant]
  6. MULTAQ [Concomitant]
  7. PRADAXA [Suspect]
     Indication: ATRIAL FIBRILLATION
     Route: 048
     Dates: start: 20110101, end: 20120501
  8. AMBIEN [Concomitant]
  9. ULTRAM [Concomitant]
  10. MICRO-K [Concomitant]
  11. ATIVAN [Concomitant]
  12. LYRICA [Concomitant]

REACTIONS (1)
  - GASTROINTESTINAL HAEMORRHAGE [None]
